FAERS Safety Report 25983098 (Version 2)
Quarter: 2025Q4

REPORT INFORMATION
  Report Type: Spontaneous
  Country: US (occurrence: US)
  Receive Date: 20251031
  Receipt Date: 20251124
  Transmission Date: 20260118
  Serious: No
  Sender: BAUSCH AND LOMB
  Company Number: US-MLMSERVICE-20251017-PI678409-00174-1

PATIENT
  Age: 25 Year
  Sex: Male

DRUGS (9)
  1. LORAZEPAM [Suspect]
     Active Substance: LORAZEPAM
     Indication: Hallucination, auditory
     Dosage: ON HD35 AT 1:30AM
     Route: 048
  2. CLOZAPINE [Suspect]
     Active Substance: CLOZAPINE
     Indication: Product used for unknown indication
     Dosage: HOSPITAL DAY (HD) 23, WHICH WAS UPTITRATED TO A TOTAL DAILY DOSE OF 350MG BY HD34
     Route: 065
  3. OLANZAPINE [Suspect]
     Active Substance: OLANZAPINE
     Indication: Product used for unknown indication
     Dosage: PRIOR TO ADMISSION
     Route: 065
  4. PALIPERIDONE [Concomitant]
     Active Substance: PALIPERIDONE
     Indication: Product used for unknown indication
     Dosage: HOSPITAL DAY (HD) 10, WHICH WAS UPTITRATED TO A TOTAL DAILY DOSE OF 12MG BY HD18.
     Route: 065
  5. HALOPERIDOL [Concomitant]
     Active Substance: HALOPERIDOL
     Indication: Hallucination, auditory
     Dosage: HD35 AT 1:30AM
     Route: 048
  6. VALPROIC ACID [Concomitant]
     Active Substance: VALPROIC ACID
     Indication: Product used for unknown indication
  7. TOPIRAMATE [Concomitant]
     Active Substance: TOPIRAMATE
     Indication: Product used for unknown indication
  8. DIPHENHYDRAMINE [Concomitant]
     Active Substance: DIPHENHYDRAMINE
     Indication: Dystonia
  9. DANTROLENE [Concomitant]
     Active Substance: DANTROLENE
     Indication: Mental status changes

REACTIONS (1)
  - Symptom masked [Unknown]
